FAERS Safety Report 9060180 (Version 1)
Quarter: 2013Q1

REPORT INFORMATION
  Report Type: Spontaneous
  Country: US (occurrence: None)
  Receive Date: 20130206
  Receipt Date: 20130206
  Transmission Date: 20140127
  Serious: No
  Sender: FDA-Public Use
  Company Number: None

PATIENT
  Age: 7 Year
  Sex: Female

DRUGS (1)
  1. LAMICTAL XR (NAME BRAND) [Suspect]
     Dosage: 100MG / # 60; QHS; ORAL
     Route: 048

REACTIONS (1)
  - Product substitution issue [None]
